FAERS Safety Report 11636659 (Version 1)
Quarter: 2015Q4

REPORT INFORMATION
  Report Type: Spontaneous
  Country: US (occurrence: None)
  Receive Date: 20151015
  Receipt Date: 20151015
  Transmission Date: 20160304
  Serious: Yes (Disabling)
  Sender: FDA-Public Use
  Company Number: None

PATIENT
  Sex: Male
  Weight: 69.85 kg

DRUGS (20)
  1. RANITIDINE [Concomitant]
     Active Substance: RANITIDINE\RANITIDINE HYDROCHLORIDE
  2. TESTOSTERONE INJ. THERAPY [Concomitant]
  3. PRESISTA [Concomitant]
  4. AZT [Concomitant]
     Active Substance: ZIDOVUDINE
  5. VICODEN [Concomitant]
  6. SOLUBLE FIBER THERAPY PWDR [Concomitant]
  7. KALETRA [Concomitant]
     Active Substance: LOPINAVIR\RITONAVIR
  8. ACETAMINOPHEN. [Concomitant]
     Active Substance: ACETAMINOPHEN
  9. VIROMUNE [Concomitant]
  10. ZIAGEN [Concomitant]
     Active Substance: ABACAVIR SULFATE
  11. COMBIVIR [Concomitant]
     Active Substance: LAMIVUDINE\ZIDOVUDINE
  12. ATRIPLA [Concomitant]
     Active Substance: EFAVIRENZ\EMTRICITABINE\TENOFOVIR DISOPROXIL FUMARATE
  13. VIROCEPT [Concomitant]
  14. TIVICAY [Suspect]
     Active Substance: DOLUTEGRAVIR SODIUM
     Indication: HIV INFECTION
     Dosage: 1 TABLET PER DAY ONCE DAILY BY MOUTH WITH FOOD
     Route: 048
  15. HYDROXYZINE [Concomitant]
     Active Substance: HYDROXYZINE\HYDROXYZINE HYDROCHLORIDE
  16. VIDEX [Concomitant]
     Active Substance: DIDANOSINE
  17. SUSTIVA [Concomitant]
     Active Substance: EFAVIRENZ
  18. MOMETASONE [Concomitant]
     Active Substance: MOMETASONE
  19. NORVIR [Concomitant]
     Active Substance: RITONAVIR
  20. TRIZIVIR [Concomitant]
     Active Substance: ABACAVIR SULFATE\LAMIVUDINE\ZIDOVUDINE

REACTIONS (27)
  - Photopsia [None]
  - Throat irritation [None]
  - Influenza like illness [None]
  - Dysuria [None]
  - Musculoskeletal stiffness [None]
  - Renal pain [None]
  - Headache [None]
  - Eye pain [None]
  - Eye irritation [None]
  - Hot flush [None]
  - Genital swelling [None]
  - Dry eye [None]
  - Loss of consciousness [None]
  - Ocular hyperaemia [None]
  - Macular degeneration [None]
  - Oropharyngeal pain [None]
  - Skin exfoliation [None]
  - Joint stiffness [None]
  - Myalgia [None]
  - Pain in extremity [None]
  - Joint swelling [None]
  - Rash [None]
  - Tongue disorder [None]
  - Fatigue [None]
  - Abdominal pain upper [None]
  - Libido increased [None]
  - Nasopharyngitis [None]
